FAERS Safety Report 11505785 (Version 1)
Quarter: 2015Q3

REPORT INFORMATION
  Report Type: Spontaneous
  Country: US (occurrence: US)
  Receive Date: 20150915
  Receipt Date: 20150915
  Transmission Date: 20151125
  Serious: No
  Sender: FDA-Public Use
  Company Number: US-ROCHE-772844

PATIENT
  Age: 45 Year
  Sex: Male

DRUGS (2)
  1. PEGASYS [Suspect]
     Active Substance: PEGINTERFERON ALFA-2A
     Indication: HEPATITIS C
     Route: 058
  2. RIBAVIRIN. [Suspect]
     Active Substance: RIBAVIRIN
     Indication: HEPATITIS C
     Dosage: DIVIDED DOSES
     Route: 048

REACTIONS (7)
  - Irritability [Unknown]
  - Agitation [Unknown]
  - Anxiety [Unknown]
  - Crying [Unknown]
  - Abdominal distension [Unknown]
  - Vision blurred [Unknown]
  - Anger [Unknown]

NARRATIVE: CASE EVENT DATE: 20110405
